FAERS Safety Report 6334475-8 (Version None)
Quarter: 2009Q3

REPORT INFORMATION
  Report Type: 
  Country: None (occurrence: None)
  Receive Date: 20090827
  Receipt Date: 20090804
  Transmission Date: 20100115
  Serious: Yes (Hospitalization, Other)
  Sender: FDA-Public Use
  Company Number: 2007-165251-NL

PATIENT
  Age: 30 Year
  Sex: Female
  Weight: 115.2136 kg

DRUGS (3)
  1. NUVARING [Suspect]
     Indication: CONTRACEPTION
     Dosage: 1 DF; VAG
     Route: 067
     Dates: start: 20050501, end: 20051016
  2. LASIX [Concomitant]
  3. METRONIDAZOLE [Concomitant]

REACTIONS (6)
  - CHOLELITHIASIS [None]
  - DEEP VEIN THROMBOSIS [None]
  - MICROCYTIC ANAEMIA [None]
  - PELVIC VENOUS THROMBOSIS [None]
  - RENAL ATROPHY [None]
  - VENA CAVA THROMBOSIS [None]
